FAERS Safety Report 9730837 (Version 1)
Quarter: 2013Q4

REPORT INFORMATION
  Report Type: Report from Study
  Country: CA (occurrence: CA)
  Receive Date: 20131203
  Receipt Date: 20131203
  Transmission Date: 20140711
  Serious: Yes (Other)
  Sender: FDA-Public Use
  Company Number: CA-ROCHE-1310222

PATIENT
  Sex: Male

DRUGS (2)
  1. PEGASYS [Suspect]
     Indication: CHRONIC HEPATITIS C
     Dosage: 0.5 ML PRE-FILLED SYRINGE
     Route: 058
     Dates: start: 20121025, end: 20130701
  2. COPEGUS [Suspect]
     Indication: CHRONIC HEPATITIS C
     Dosage: 28 TABLET/WEEK
     Route: 048
     Dates: start: 20121025, end: 20130701

REACTIONS (3)
  - Amnesia [Unknown]
  - Tooth loss [Unknown]
  - Visual acuity reduced [Unknown]
